FAERS Safety Report 7315595-8 (Version None)
Quarter: 2011Q1

REPORT INFORMATION
  Report Type: 
  Country: None (occurrence: None)
  Receive Date: 20110225
  Receipt Date: 20110222
  Transmission Date: 20110831
  Serious: No
  Sender: FDA-Public Use
  Company Number: BE-BRISTOL-MYERS SQUIBB COMPANY-15517956

PATIENT
  Age: 34 Year
  Sex: Female
  Weight: 185 kg

DRUGS (11)
  1. PLAVIX [Concomitant]
  2. PROSCAR [Concomitant]
  3. PANTOMED [Concomitant]
  4. ORENCIA [Suspect]
     Indication: RHEUMATOID ARTHRITIS
     Dosage: 1DF=4 VIALS
     Route: 042
     Dates: start: 20101007, end: 20110127
  5. CORUNO [Concomitant]
  6. ALDACTAZINE [Concomitant]
  7. LIPANTHYL [Concomitant]
  8. COVERA-HS [Concomitant]
  9. ARAVA [Concomitant]
  10. TEGRETOL-XR [Concomitant]
  11. METFORMAX [Concomitant]

REACTIONS (1)
  - CHEST DISCOMFORT [None]
